FAERS Safety Report 9337791 (Version 1)
Quarter: 2013Q2

REPORT INFORMATION
  Report Type: Spontaneous
  Country: US (occurrence: US)
  Receive Date: 20130607
  Receipt Date: 20130607
  Transmission Date: 20140414
  Serious: Yes (Other)
  Sender: FDA-Public Use
  Company Number: US-UCBSA-088276

PATIENT
  Sex: Female

DRUGS (9)
  1. CIMZIA [Suspect]
     Indication: CROHN^S DISEASE
     Dosage: UNKNOWN DOSE
  2. ZANTAC [Concomitant]
     Dosage: UNKNOWN DOSE
  3. POTASSIUM [Concomitant]
     Dosage: UNKNOWN DOSE
  4. 6 MP [Concomitant]
     Dosage: UNKNOWN DOSE
  5. FLAGYL [Concomitant]
     Dosage: UNKNOWN DOSE
  6. RIFAMPIN [Concomitant]
     Dosage: UNKNOWN DOSE
  7. ENTOCORT [Concomitant]
     Dosage: UNKNOWN DOSE
  8. REMICADE [Concomitant]
     Dosage: UNKNOWN DOSE; 2 DOSES
  9. NEXIUM [Concomitant]
     Dosage: UNKNOWN DOSE

REACTIONS (7)
  - Abdominal pain [Unknown]
  - Vomiting [Unknown]
  - Diarrhoea haemorrhagic [Unknown]
  - Crohn^s disease [Unknown]
  - Abscess intestinal [Unknown]
  - Emotional disorder [Unknown]
  - Insomnia [Unknown]
